FAERS Safety Report 17436601 (Version 1)
Quarter: 2020Q1

REPORT INFORMATION
  Report Type: Spontaneous
  Country: AU (occurrence: AU)
  Receive Date: 20200219
  Receipt Date: 20200219
  Transmission Date: 20200409
  Serious: Yes (Other)
  Sender: FDA-Public Use
  Company Number: AU-BAUSCH-BL-2020-005227

PATIENT
  Sex: Male

DRUGS (1)
  1. EFUDIX CREAM 5% [Suspect]
     Active Substance: FLUOROURACIL
     Indication: PRODUCT USED FOR UNKNOWN INDICATION
     Dosage: 20 GRAM
     Route: 061
     Dates: start: 20191122

REACTIONS (21)
  - Memory impairment [Unknown]
  - Anger [Unknown]
  - Abdominal discomfort [Unknown]
  - Nasopharyngitis [Unknown]
  - Pain [Unknown]
  - Erythema [Unknown]
  - Bipolar disorder [Unknown]
  - Suicidal ideation [Unknown]
  - Fatigue [Unknown]
  - Emotional disorder [Unknown]
  - Insomnia [Unknown]
  - Back pain [Unknown]
  - Alopecia [Unknown]
  - Irritability [Unknown]
  - Pruritus [Unknown]
  - Overdose [Unknown]
  - Cough [Unknown]
  - Dermatitis [Unknown]
  - Crying [Unknown]
  - Mental impairment [Unknown]
  - Anxiety [Unknown]
